FAERS Safety Report 15688992 (Version 1)
Quarter: 2018Q4

REPORT INFORMATION
  Report Type: Spontaneous
  Country: US (occurrence: US)
  Receive Date: 20181204
  Receipt Date: 20181204
  Transmission Date: 20190205
  Serious: Yes (Disabling)
  Sender: FDA-Public Use
  Company Number: None

PATIENT
  Age: 59 Year
  Sex: Female
  Weight: 121.5 kg

DRUGS (7)
  1. EXCEDRIN [Concomitant]
     Active Substance: ACETAMINOPHEN\ASPIRIN\CAFFEINE
  2. AIMOVIG [Suspect]
     Active Substance: ERENUMAB-AOOE
     Indication: MIGRAINE
     Dosage: ?          QUANTITY:1 INJECTION(S);OTHER FREQUENCY:MONTHLY;?
     Route: 030
     Dates: start: 20181014, end: 20181116
  3. PAXIL [Concomitant]
     Active Substance: PAROXETINE HYDROCHLORIDE
  4. ADVIL [Concomitant]
     Active Substance: IBUPROFEN
  5. VEREPEMIL [Concomitant]
  6. IMITREX [Concomitant]
     Active Substance: SUMATRIPTAN SUCCINATE
  7. MELETONIN [Concomitant]

REACTIONS (11)
  - Flatulence [None]
  - Muscle spasms [None]
  - Gait disturbance [None]
  - Insomnia [None]
  - Impaired work ability [None]
  - Vertigo [None]
  - Myofascial spasm [None]
  - Anal incontinence [None]
  - Fall [None]
  - Diarrhoea [None]
  - Back pain [None]

NARRATIVE: CASE EVENT DATE: 20181016
